FAERS Safety Report 4429621-7 (Version None)
Quarter: 2004Q3

REPORT INFORMATION
  Report Type: 
  Country: None (occurrence: None)
  Receive Date: 20040819
  Receipt Date: 20040810
  Transmission Date: 20050211
  Serious: Yes (Other)
  Sender: FDA-Public Use
  Company Number: 2004054983

PATIENT
  Age: 16 Year
  Sex: Male

DRUGS (1)
  1. DRAMAMINE [Suspect]
     Indication: EUPHORIC MOOD
     Dosage: ABOUT 12 PILLS ONCE, ORAL
     Route: 048
     Dates: start: 20040804, end: 20040804

REACTIONS (5)
  - CONVULSION [None]
  - FALL [None]
  - HEAD INJURY [None]
  - LOSS OF CONSCIOUSNESS [None]
  - MEDICATION ERROR [None]
